FAERS Safety Report 6636126-1 (Version None)
Quarter: 2010Q1

REPORT INFORMATION
  Report Type: 
  Country: None (occurrence: None)
  Receive Date: 20100225
  Receipt Date: 20091111
  Transmission Date: 20100710
  Serious: Yes (Other)
  Sender: FDA-Public Use
  Company Number: US-JNJFOC-20091104413

PATIENT
  Age: 51 Year
  Sex: Female
  Weight: 66.2252 kg

DRUGS (12)
  1. IBUPROFEN [Suspect]
     Indication: ARTHRITIS
     Dosage: 400 MG
  2. IBUPROFEN [Suspect]
     Indication: FIBROMYALGIA
     Dosage: 400 MG
  3. IBUPROFEN [Suspect]
     Indication: H1N1 INFLUENZA
     Dosage: 400 MG
  4. IBUPROFEN [Suspect]
     Indication: PYREXIA
     Dosage: 400 MG
  5. ALEVE [Suspect]
     Indication: ARTHRITIS
     Dosage: 440 MG
  6. ALEVE [Suspect]
     Indication: FIBROMYALGIA
     Dosage: 440 MG
  7. ALEVE [Suspect]
     Indication: H1N1 INFLUENZA
     Dosage: 440 MG
  8. ALEVE [Suspect]
     Indication: PYREXIA
     Dosage: 440 MG
  9. LYRICA [Suspect]
     Indication: FIBROMYALGIA
     Dosage: 75 MG, 2 IN 1 DAY; SEE IMAGE
     Dates: start: 20080101, end: 20091009
  10. LYRICA [Suspect]
     Indication: FIBROMYALGIA
     Dosage: 75 MG, 2 IN 1 DAY; SEE IMAGE
     Dates: start: 20080401
  11. CLONAZEPAM [Concomitant]
  12. ZOLOFT [Concomitant]

REACTIONS (2)
  - GASTRIC ULCER HAEMORRHAGE [None]
  - INTENTIONAL DRUG MISUSE [None]
